FAERS Safety Report 23188474 (Version 2)
Quarter: 2023Q4

REPORT INFORMATION
  Report Type: Report from Study
  Country: US (occurrence: US)
  Receive Date: 20231115
  Receipt Date: 20231125
  Transmission Date: 20240110
  Serious: Yes (Hospitalization)
  Sender: FDA-Public Use
  Company Number: US-002147023-NVSC2023US241685

PATIENT
  Age: 39 Year
  Sex: Male

DRUGS (1)
  1. ENTRESTO [Suspect]
     Active Substance: SACUBITRIL\VALSARTAN
     Indication: Cardiac failure
     Dosage: 24.26 MG, BID
     Route: 048
     Dates: start: 20231003

REACTIONS (7)
  - Cardiac failure [Unknown]
  - Condition aggravated [Unknown]
  - Weight increased [Recovering/Resolving]
  - Gait inability [Recovering/Resolving]
  - Cough [Unknown]
  - Throat irritation [Unknown]
  - Product dose omission issue [Unknown]

NARRATIVE: CASE EVENT DATE: 20231001
